FAERS Safety Report 6086541-2 (Version None)
Quarter: 2009Q1

REPORT INFORMATION
  Report Type: 
  Country: None (occurrence: None)
  Receive Date: 20090223
  Receipt Date: 20090218
  Transmission Date: 20090719
  Serious: Yes (Life-Threatening, Hospitalization)
  Sender: FDA-Public Use
  Company Number: IL-BRISTOL-MYERS SQUIBB COMPANY-14397111

PATIENT
  Age: 73 Year
  Sex: Female

DRUGS (11)
  1. CETUXIMAB [Suspect]
     Indication: BREAST CANCER METASTATIC
     Dosage: STARTED ON 24-JUN-2008.
     Route: 041
     Dates: start: 20081005, end: 20081005
  2. CISPLATIN [Suspect]
     Indication: BREAST CANCER METASTATIC
     Dosage: THERAPY STARTED ON 24-JUN-2008.
     Route: 041
     Dates: start: 20080922, end: 20080922
  3. CYTOXAN [Suspect]
  4. ADRIAMYCIN PFS [Suspect]
  5. RADIATION THERAPY [Suspect]
  6. COUMADIN [Concomitant]
  7. ASPIRIN [Concomitant]
  8. NORMITEN [Concomitant]
  9. ENALADEX [Concomitant]
  10. NORVASC [Concomitant]
     Indication: HYPERTENSION
  11. DISOTHIAZIDE [Concomitant]

REACTIONS (1)
  - DYSPNOEA [None]
